FAERS Safety Report 21360356 (Version 1)
Quarter: 2022Q3

REPORT INFORMATION
  Report Type: Spontaneous
  Country: FR (occurrence: FR)
  Receive Date: 20220921
  Receipt Date: 20220921
  Transmission Date: 20221027
  Serious: Yes (Life-Threatening, Hospitalization, Other)
  Sender: FDA-Public Use
  Company Number: None

PATIENT

DRUGS (15)
  1. ACYCLOVIR [Suspect]
     Active Substance: ACYCLOVIR
     Indication: Stomatitis
     Dosage: 600 MG, QD
     Route: 042
     Dates: start: 20220825, end: 20220829
  2. VALACYCLOVIR HYDROCHLORIDE [Suspect]
     Active Substance: VALACYCLOVIR HYDROCHLORIDE
     Indication: Antiviral prophylaxis
     Dosage: 1 G, QD
     Route: 048
     Dates: start: 20220818, end: 20220825
  3. PROCARBAZINE HYDROCHLORIDE [Suspect]
     Active Substance: PROCARBAZINE HYDROCHLORIDE
     Indication: B-cell lymphoma
     Dosage: 200 MG, QD
     Route: 048
     Dates: start: 20220818, end: 20220823
  4. METHOTREXATE [Suspect]
     Active Substance: METHOTREXATE
     Indication: B-cell lymphoma
     Dosage: 7000 MG (TOTAL)
     Route: 042
     Dates: start: 20220817, end: 20220818
  5. VINCRISTINE SULFATE [Suspect]
     Active Substance: VINCRISTINE SULFATE
     Indication: B-cell lymphoma
     Dosage: 2.8 MG (TOTAL)
     Route: 042
     Dates: start: 20220818, end: 20220818
  6. RITUXIMAB [Suspect]
     Active Substance: RITUXIMAB
     Indication: B-cell lymphoma
     Dosage: 750 MG; TOTAL
     Route: 042
     Dates: start: 20220819, end: 20220819
  7. MILNACIPRAN [Concomitant]
     Active Substance: MILNACIPRAN
     Indication: Product used for unknown indication
     Dosage: UNK
     Route: 065
  8. MOVICOL [Concomitant]
     Active Substance: POLYETHYLENE GLYCOL 3350\POTASSIUM CHLORIDE\SODIUM BICARBONATE\SODIUM CHLORIDE
     Indication: Product used for unknown indication
     Dosage: UNK
     Route: 065
  9. CLONAZEPAM [Concomitant]
     Active Substance: CLONAZEPAM
     Indication: Product used for unknown indication
     Dosage: UNK
     Route: 065
  10. LOVENOX (ENOXAPARIN SODIC) [Concomitant]
     Indication: Product used for unknown indication
     Dosage: UNK
     Route: 065
  11. METHYLPREDNISOLONE [Concomitant]
     Active Substance: METHYLPREDNISOLONE
     Indication: Product used for unknown indication
     Dosage: UNK
     Route: 065
  12. ACETAMINOPHEN [Concomitant]
     Active Substance: ACETAMINOPHEN
     Indication: Product used for unknown indication
     Dosage: UNK
     Route: 065
  13. PANTOPRAZOLE [Concomitant]
     Active Substance: PANTOPRAZOLE
     Indication: Product used for unknown indication
     Dosage: UNK
     Route: 065
  14. AMITRIPTYLINE [Concomitant]
     Active Substance: AMITRIPTYLINE
     Indication: Product used for unknown indication
     Dosage: UNK
     Route: 065
  15. SKENAN [Concomitant]
     Active Substance: MORPHINE SULFATE
     Indication: Product used for unknown indication
     Dosage: UNK
     Route: 065

REACTIONS (4)
  - Bicytopenia [Recovered/Resolved]
  - Acute kidney injury [Recovering/Resolving]
  - Hepatic cytolysis [Recovering/Resolving]
  - Stomatitis [Recovered/Resolved]

NARRATIVE: CASE EVENT DATE: 20220819
